FAERS Safety Report 18232191 (Version 1)
Quarter: 2020Q3

REPORT INFORMATION
  Report Type: Spontaneous
  Country: US (occurrence: US)
  Receive Date: 20200904
  Receipt Date: 20200904
  Transmission Date: 20201103
  Serious: Yes (Hospitalization, Other)
  Sender: FDA-Public Use
  Company Number: US-BAYER-2020-184590

PATIENT
  Sex: Female

DRUGS (17)
  1. CYCLOBENZAPRINE. [Concomitant]
     Active Substance: CYCLOBENZAPRINE
  2. HYDROCODONE;PARACETAMOL [Concomitant]
  3. CHANTIX [Concomitant]
     Active Substance: VARENICLINE TARTRATE
  4. LEVOTHYROXINE. [Concomitant]
     Active Substance: LEVOTHYROXINE
  5. ALEVE [Suspect]
     Active Substance: NAPROXEN SODIUM
  6. BETAMETHASONE ACETATE [Concomitant]
     Active Substance: BETAMETHASONE ACETATE
  7. LATANAPROST/TIMOLOL [Concomitant]
     Active Substance: LATANOPROST\TIMOLOL
  8. FAMOTIDINE. [Concomitant]
     Active Substance: FAMOTIDINE
  9. NABUMETONE. [Concomitant]
     Active Substance: NABUMETONE
  10. PANTOPRAZOLE [Concomitant]
     Active Substance: PANTOPRAZOLE
  11. BETAMETHASONE SODIUM PHOSPHATE [Concomitant]
     Active Substance: BETAMETHASONE SODIUM PHOSPHATE
  12. IBUPROFEN. [Concomitant]
     Active Substance: IBUPROFEN
  13. NAPROXEN. [Concomitant]
     Active Substance: NAPROXEN
  14. METRONIDAZOLE. [Concomitant]
     Active Substance: METRONIDAZOLE
  15. FENTANYL. [Concomitant]
     Active Substance: FENTANYL
  16. SYMBICORT [Concomitant]
     Active Substance: BUDESONIDE\FORMOTEROL FUMARATE DIHYDRATE
  17. FLUOXETINE [Concomitant]
     Active Substance: FLUOXETINE HYDROCHLORIDE

REACTIONS (4)
  - Hospitalisation [Unknown]
  - Eating disorder [Unknown]
  - Depression [Unknown]
  - Suicide attempt [Unknown]
